FAERS Safety Report 8799922 (Version 3)
Quarter: 2012Q4

REPORT INFORMATION
  Report Type: Spontaneous
  Country: GB (occurrence: None)
  Receive Date: 20120917
  Receipt Date: 20121012
  Transmission Date: 20130627
  Serious: Yes (Death, Life-Threatening, Hospitalization)
  Sender: FDA-Public Use
  Company Number: 2012MPI00404

PATIENT
  Age: 55 Year
  Sex: Male

DRUGS (17)
  1. BRENTUXIMAB VEDOTIN [Suspect]
     Indication: LYMPHOMA
     Route: 042
     Dates: start: 20120730, end: 20120730
  2. PROCHLORPERAZINE (PROCHLORPERAZINE MALEATE) [Concomitant]
  3. ZOPICLONE (ZOPICLONE) [Concomitant]
  4. DEXAMETHASONE (DEXAMETHASONE SODIUM PHOSPHATE) [Concomitant]
  5. PHYTOMENADIONE (PHYTOMENADIONE) [Concomitant]
  6. CODEINE (CODEINE PHOSPHATE HEMIHYDRATE) [Concomitant]
  7. ALLOPURINOL (ALLOPURINOL) [Concomitant]
  8. TAZOCIN (PIPERACILLIN SODIUM, TAZOBACTAM SODIUM) [Concomitant]
  9. PANTOPRAZOLE (PANTOPRAZOLE) [Concomitant]
  10. PHOSPHATE SANDOZ (POTASSIUM BICARBONATE, SODIUM BICARBBONATE, SODIUM PHOSPHATE DIBASIC) [Concomitant]
  11. METOCLOPRAMIDE (METOCLOPRAMIDE HYDROCHLORIDE) [Concomitant]
  12. PABRINEX (ASCORBIC ACID, NICOTINAMIDE, PYRIDOXINE HYDROCHLORIDE, RIBOFLAVIN SODIUM PHOSPHATE, THIAMINE HYDROCHLORIDE) [Concomitant]
  13. FILGRASTIM (FILGRASTIM) [Concomitant]
  14. LOPERAMIDE (LOPERAMIDE HYDROCHLORIDE) [Concomitant]
  15. ONDANSETRON (ONDANSETRON) [Concomitant]
  16. PARACETAMOL (PARACETAMOL) [Concomitant]
  17. LANSOPRAZOLE (LANSOPRAZOLE) [Concomitant]

REACTIONS (22)
  - Myocardial infarction [None]
  - Left ventricular dysfunction [None]
  - Cardiac failure [None]
  - Sepsis [None]
  - Hypotension [None]
  - Aspiration [None]
  - Atelectasis [None]
  - Lung infection [None]
  - Blood creatinine decreased [None]
  - Neutrophil count decreased [None]
  - Blood sodium decreased [None]
  - Blood potassium decreased [None]
  - Scan abdomen abnormal [None]
  - Mesenteritis [None]
  - Ascites [None]
  - Condition aggravated [None]
  - Neutropenic colitis [None]
  - Dermatitis bullous [None]
  - Lung consolidation [None]
  - Pulmonary mass [None]
  - Pleural effusion [None]
  - Lymphoma [None]
